FAERS Safety Report 24264618 (Version 1)
Quarter: 2024Q3

REPORT INFORMATION
  Report Type: Spontaneous
  Country: US (occurrence: None)
  Receive Date: 20240828
  Receipt Date: 20240828
  Transmission Date: 20241017
  Serious: Yes (Other)
  Sender: Public
  Company Number: None

PATIENT
  Age: 64 Year
  Sex: Female
  Weight: 76.5 kg

DRUGS (12)
  1. VEOZAH [Suspect]
     Active Substance: FEZOLINETANT
     Indication: Hot flush
     Dosage: OTHER QUANTITY : 1 TABLET(S);?FREQUENCY : DAILY;?
     Route: 048
     Dates: start: 20240815, end: 20240821
  2. IBRANCE [Concomitant]
     Active Substance: PALBOCICLIB
  3. Femara 25 mg [Concomitant]
  4. Flonase, [Concomitant]
  5. famotidine, [Concomitant]
  6. dicofenac gel [Concomitant]
  7. FOLIC ACID [Concomitant]
     Active Substance: FOLIC ACID
  8. calicum [Concomitant]
  9. METHYLCOBALAMIN [Concomitant]
     Active Substance: METHYLCOBALAMIN
  10. D3 [Concomitant]
  11. FISH OIL [Concomitant]
     Active Substance: FISH OIL
  12. tumeric, [Concomitant]

REACTIONS (2)
  - Sleep disorder [None]
  - Abnormal dreams [None]

NARRATIVE: CASE EVENT DATE: 20240815
